FAERS Safety Report 12736809 (Version 1)
Quarter: 2016Q3

REPORT INFORMATION
  Report Type: Spontaneous
  Country: BR (occurrence: BR)
  Receive Date: 20160912
  Receipt Date: 20160912
  Transmission Date: 20161109
  Serious: Yes (Hospitalization, Other)
  Sender: FDA-Public Use
  Company Number: BR-GLAXOSMITHKLINE-BR2016GSK132401

PATIENT
  Age: 66 Year
  Sex: Female

DRUGS (6)
  1. AEROLIN [Suspect]
     Active Substance: ALBUTEROL
     Indication: ASTHMA
     Route: 055
  2. SIMVASTATIN. [Concomitant]
     Active Substance: SIMVASTATIN
     Indication: BLOOD CHOLESTEROL INCREASED
     Dosage: 2 DF, QD
     Route: 048
  3. ARADOIS [Concomitant]
     Active Substance: LOSARTAN POTASSIUM
     Indication: HYPERTENSION
     Dosage: 2 DF, QD
     Route: 048
  4. SERETIDE [Suspect]
     Active Substance: FLUTICASONE PROPIONATE\SALMETEROL XINAFOATE
     Indication: ASTHMA
     Dosage: 3 PUFF(S), QD
     Route: 055
  5. GINKGO BILOBA [Concomitant]
     Active Substance: GINKGO
     Indication: LABYRINTHITIS
     Route: 048
  6. XANTINON [Concomitant]
     Indication: PRODUCT USED FOR UNKNOWN INDICATION
     Dosage: 2 DF, QD
     Route: 048

REACTIONS (9)
  - Asthmatic crisis [Unknown]
  - Asthma [Recovered/Resolved]
  - Overdose [Unknown]
  - Pain [Unknown]
  - Cough [Unknown]
  - Calculus bladder [Unknown]
  - Off label use [Unknown]
  - Inability to afford medication [Unknown]
  - Hepatic haematoma [Recovering/Resolving]

NARRATIVE: CASE EVENT DATE: 201603
